FAERS Safety Report 10069369 (Version 1)
Quarter: 2014Q2

REPORT INFORMATION
  Report Type: Spontaneous
  Country: CA (occurrence: CA)
  Receive Date: 20140410
  Receipt Date: 20140410
  Transmission Date: 20141212
  Serious: Yes (Other)
  Sender: FDA-Public Use
  Company Number: CA-AMGEN INC.-CANSP2014024684

PATIENT
  Sex: Female

DRUGS (3)
  1. ENBREL [Suspect]
     Indication: JUVENILE IDIOPATHIC ARTHRITIS
     Dosage: UNK
     Route: 065
  2. MTX                                /00113801/ [Concomitant]
     Dosage: UNK
  3. LEFLUNOMIDE [Concomitant]
     Dosage: UNK

REACTIONS (1)
  - Sarcoma [Unknown]
